FAERS Safety Report 10738670 (Version 1)
Quarter: 2015Q1

REPORT INFORMATION
  Report Type: Spontaneous
  Country: US (occurrence: US)
  Receive Date: 20150126
  Receipt Date: 20150126
  Transmission Date: 20150721
  Serious: No
  Sender: FDA-Public Use
  Company Number: US-DYAX CORP.-2014DX000113

PATIENT
  Age: 31 Year
  Sex: Female
  Weight: 95.34 kg

DRUGS (4)
  1. KALBITOR [Suspect]
     Active Substance: ECALLANTIDE
     Indication: HEREDITARY ANGIOEDEMA
     Route: 058
     Dates: start: 20140624, end: 20140624
  2. KALBITOR [Suspect]
     Active Substance: ECALLANTIDE
     Route: 030
     Dates: start: 20140524, end: 20140524
  3. KALBITOR [Suspect]
     Active Substance: ECALLANTIDE
     Route: 058
     Dates: start: 2013
  4. ORTHO TRI CYCLEN [Concomitant]
     Active Substance: ETHINYL ESTRADIOL\NORGESTIMATE
     Indication: CONTRACEPTION
     Route: 048

REACTIONS (6)
  - Influenza like illness [Recovered/Resolved]
  - Incorrect route of drug administration [Recovered/Resolved]
  - Seasonal allergy [Recovered/Resolved]
  - Off label use [Unknown]
  - Rash [Recovered/Resolved]
  - Nasopharyngitis [Recovered/Resolved]

NARRATIVE: CASE EVENT DATE: 2013
